FAERS Safety Report 16112945 (Version 1)
Quarter: 2019Q1

REPORT INFORMATION
  Report Type: Spontaneous
  Country: GB (occurrence: GB)
  Receive Date: 20190325
  Receipt Date: 20190325
  Transmission Date: 20190418
  Serious: Yes (Other)
  Sender: FDA-Public Use
  Company Number: GB-UCBSA-2019011213

PATIENT
  Age: 68 Year
  Sex: Male
  Weight: 82.55 kg

DRUGS (4)
  1. LAMOTRIGINE. [Concomitant]
     Active Substance: LAMOTRIGINE
     Indication: PRODUCT USED FOR UNKNOWN INDICATION
  2. BRIVIACT [Suspect]
     Active Substance: BRIVARACETAM
     Indication: EPILEPSY
     Dosage: 50 MG PER DAY
     Route: 048
     Dates: start: 20190210, end: 20190226
  3. PERAMPANEL [Concomitant]
     Active Substance: PERAMPANEL
     Indication: PRODUCT USED FOR UNKNOWN INDICATION
  4. LACOSAMIDE. [Concomitant]
     Active Substance: LACOSAMIDE
     Indication: PRODUCT USED FOR UNKNOWN INDICATION

REACTIONS (8)
  - Photophobia [Recovering/Resolving]
  - Condition aggravated [Unknown]
  - Agitation [Recovering/Resolving]
  - Insomnia [Not Recovered/Not Resolved]
  - Aggression [Recovering/Resolving]
  - Hyperacusis [Not Recovered/Not Resolved]
  - Impulsive behaviour [Unknown]
  - Anger [Unknown]

NARRATIVE: CASE EVENT DATE: 201902
